FAERS Safety Report 7922661 (Version 3)
Quarter: 2013Q4

REPORT INFORMATION
  Report Type: Spontaneous
  Country: US (occurrence: US)
  Receive Date: 20110429
  Receipt Date: 20131119
  Transmission Date: 20140711
  Serious: Yes (Other)
  Sender: FDA-Public Use
  Company Number: US-ASTRAZENECA-2010SE05755

PATIENT
  Age: 639 Month
  Sex: Female
  Weight: 45.4 kg

DRUGS (10)
  1. NEXIUM [Suspect]
     Indication: GASTROOESOPHAGEAL REFLUX DISEASE
     Route: 048
     Dates: end: 2013
  2. SYMBICORT [Suspect]
     Dosage: 160/4.5 MCG, ONE PUFF ON OCCASION AS NEEDED
     Route: 055
  3. LISINOPRIL [Suspect]
     Indication: BLOOD PRESSURE ABNORMAL
     Route: 048
     Dates: start: 2007
  4. OMEPRAZOLE [Suspect]
     Indication: GASTROOESOPHAGEAL REFLUX DISEASE
     Route: 048
     Dates: start: 2007
  5. OMEPRAZOLE [Suspect]
     Indication: GASTROOESOPHAGEAL REFLUX DISEASE
     Route: 048
     Dates: start: 2013
  6. GENERIC ZANAFLEX [Concomitant]
     Indication: MUSCLE SPASMS
  7. PROTONIX [Concomitant]
     Dates: start: 2008
  8. TAGAMET [Concomitant]
     Dates: start: 2013
  9. FOSAMAX [Concomitant]
  10. VALIUM [Concomitant]

REACTIONS (21)
  - Limb crushing injury [Unknown]
  - Bronchitis [Unknown]
  - Food intolerance [Unknown]
  - Ulcer [Unknown]
  - Diverticulitis [Unknown]
  - Hiatus hernia [Unknown]
  - Influenza like illness [Unknown]
  - Panic attack [Unknown]
  - Asthma [Unknown]
  - Palpitations [Unknown]
  - Adverse event [Unknown]
  - Body height decreased [Unknown]
  - Osteoarthritis [Unknown]
  - Abdominal distension [Unknown]
  - Adverse event [Unknown]
  - Anxiety [Unknown]
  - Dyspepsia [Unknown]
  - Abdominal pain upper [Unknown]
  - Blood pressure increased [Unknown]
  - Intentional drug misuse [Unknown]
  - Drug dose omission [Unknown]
